FAERS Safety Report 26213311 (Version 1)
Quarter: 2025Q4

REPORT INFORMATION
  Report Type: Spontaneous
  Country: US (occurrence: US)
  Receive Date: 20251230
  Receipt Date: 20251230
  Transmission Date: 20260117
  Serious: Yes (Other)
  Sender: CHURCH & DWIGHT
  Company Number: US-CHURCH AND DWIGHT CO., INC-2025-CDW-01651

PATIENT
  Age: 34 Year
  Sex: Female

DRUGS (3)
  1. COSMETICS [Suspect]
     Active Substance: COSMETICS
     Indication: Product used for unknown indication
     Dosage: USED ABOUT HALF THE CONTAINER
     Route: 061
     Dates: start: 20251004, end: 20251004
  2. BUSPIRONE [Concomitant]
     Active Substance: BUSPIRONE HYDROCHLORIDE
     Indication: Anxiety
     Route: 065
  3. WELLBUTRIN [Concomitant]
     Active Substance: BUPROPION HYDROCHLORIDE
     Indication: Anxiety
     Route: 065

REACTIONS (4)
  - Bacterial vaginosis [Not Recovered/Not Resolved]
  - Impaired work ability [Not Recovered/Not Resolved]
  - Micturition urgency [Not Recovered/Not Resolved]
  - Product use issue [Unknown]

NARRATIVE: CASE EVENT DATE: 20251004
